FAERS Safety Report 6623292-7 (Version None)
Quarter: 2010Q1

REPORT INFORMATION
  Report Type: 
  Country: None (occurrence: None)
  Receive Date: 20100310
  Receipt Date: 20091123
  Transmission Date: 20100710
  Serious: No
  Sender: FDA-Public Use
  Company Number: US-BIOGENIDEC-2009BI038548

PATIENT
  Age: 40 Year
  Sex: Female

DRUGS (3)
  1. AVONEX [Suspect]
     Indication: MULTIPLE SCLEROSIS
     Route: 030
     Dates: start: 20000907, end: 20060727
  2. AVONEX [Suspect]
     Route: 030
     Dates: start: 20070412, end: 20070912
  3. AVONEX [Suspect]
     Route: 030
     Dates: start: 20080116

REACTIONS (4)
  - FATIGUE [None]
  - MULTIPLE SCLEROSIS RELAPSE [None]
  - OROPHARYNGEAL PAIN [None]
  - PYREXIA [None]
